FAERS Safety Report 8836006 (Version 2)
Quarter: 2012Q4

REPORT INFORMATION
  Report Type: 
  Country: US (occurrence: US)
  Receive Date: 20121011
  Receipt Date: 20121128
  Transmission Date: 20130627
  Serious: No
  Sender: FDA-Public Use
  Company Number: US-PFIZER INC-2012251189

PATIENT
  Age: 33 Year
  Sex: Male

DRUGS (4)
  1. NEURONTIN [Suspect]
     Indication: FIBROMYALGIA
     Dosage: 600 mg, 3x/day
     Route: 048
  2. INSULIN LISPRO [Concomitant]
     Dosage: 100 units/ml, UNK
  3. INSULIN GLARGINE [Concomitant]
     Dosage: 100 unit/ml (3 ml), 1x/day (20 units- Sun thru Thurs/ 40 units Fri-Sat)
     Route: 058
  4. METFORMIN [Concomitant]
     Dosage: 1000 mg, 2x/day
     Route: 048

REACTIONS (2)
  - Myalgia [Unknown]
  - Myositis [Unknown]
